FAERS Safety Report 9854973 (Version 2)
Quarter: 2014Q1

REPORT INFORMATION
  Report Type: Spontaneous
  Country: US (occurrence: US)
  Receive Date: 20140130
  Receipt Date: 20140205
  Transmission Date: 20141002
  Serious: Yes (Death, Hospitalization, Disabling, Other)
  Sender: FDA-Public Use
  Company Number: US-MERCK-1401USA013582

PATIENT
  Sex: Female
  Weight: 85.9 kg

DRUGS (10)
  1. JANUVIA [Suspect]
     Indication: TYPE 2 DIABETES MELLITUS
     Dosage: 100 MG, UNK
     Route: 048
     Dates: start: 20070917, end: 20090715
  2. LESCOL [Concomitant]
     Indication: HYPERCHOLESTEROLAEMIA
     Dosage: UNK
     Dates: start: 20011219, end: 20081121
  3. SIMVASTATIN [Concomitant]
     Indication: HYPERCHOLESTEROLAEMIA
     Dosage: UNK
     Dates: start: 20090318, end: 20111014
  4. AVAPRO [Concomitant]
     Indication: NEPHROPATHY
     Dosage: UNK
     Dates: start: 20020128, end: 20100310
  5. GLUCOVANCE [Concomitant]
     Indication: BLOOD GLUCOSE
     Dosage: UNK
     Dates: start: 20031218, end: 20080606
  6. AMITRIPTYLINE HYDROCHLORIDE [Concomitant]
     Indication: DEPRESSION
     Dosage: UNK
     Dates: start: 20051115, end: 20111025
  7. ASPIRIN [Concomitant]
  8. INSULIN [Concomitant]
  9. ALENDRONATE SODIUM [Concomitant]
  10. LOVASTATIN [Concomitant]

REACTIONS (16)
  - Adenocarcinoma pancreas [Fatal]
  - Malignant neoplasm of ampulla of Vater [Unknown]
  - Lobar pneumonia [Recovering/Resolving]
  - Duodenal ulcer haemorrhage [Unknown]
  - Duodenal ulcer [Unknown]
  - Cerebrovascular accident [Unknown]
  - Gastric ulcer [Unknown]
  - Dyspepsia [Unknown]
  - Leukopenia [Unknown]
  - Radiotherapy to pancreas [Unknown]
  - Pancreatic stent placement [Unknown]
  - Diverticulitis [Unknown]
  - Gastritis [Unknown]
  - Diverticulitis [Unknown]
  - Normochromic normocytic anaemia [Unknown]
  - Abdominal pain lower [Recovered/Resolved]
